FAERS Safety Report 9040518 (Version 1)
Quarter: 2013Q1

REPORT INFORMATION
  Report Type: Report from Study
  Country: US (occurrence: US)
  Receive Date: 20130129
  Receipt Date: 20130129
  Transmission Date: 20140127
  Serious: No
  Sender: FDA-Public Use
  Company Number: US-ABBOTT-12P-163-0890128-00

PATIENT
  Age: 74 Year
  Sex: Female

DRUGS (20)
  1. HUMIRA 40 MG/0.8 ML PEN [Suspect]
     Indication: RHEUMATOID ARTHRITIS
     Dates: start: 201110
  2. FOLIC ACID [Concomitant]
     Indication: PRODUCT USED FOR UNKNOWN INDICATION
     Dosage: 1MG - EVERY MORNING
  3. ALPRAZOLAM [Concomitant]
     Indication: NERVOUSNESS
  4. BUMETANIDE [Concomitant]
     Indication: FLUID RETENTION
  5. TRAMADOL [Concomitant]
     Indication: NERVOUSNESS
     Dosage: 50 MG - ONCE DAILY AS NEEDED
  6. ALLOPURINOL [Concomitant]
     Indication: GOUT
  7. METHOTREXATE [Concomitant]
     Indication: PRODUCT USED FOR UNKNOWN INDICATION
  8. METFORMIN [Concomitant]
     Indication: BLOOD GLUCOSE ABNORMAL
  9. DICYCLOMINE [Concomitant]
     Indication: FLATULENCE
  10. CYMBALTA [Concomitant]
     Indication: ARTHRITIS
  11. BENICAR [Concomitant]
     Indication: BLOOD PRESSURE
     Dosage: 40/2.5MG
  12. AMITRIPTYLINE [Concomitant]
     Indication: NERVOUSNESS
  13. LEVOTHROID [Concomitant]
     Indication: THYROID DISORDER
  14. NASONEX [Concomitant]
     Indication: SINUS DISORDER
  15. NASONEX [Concomitant]
     Indication: SEASONAL ALLERGY
  16. SENOKOT [Concomitant]
     Indication: GASTROINTESTINAL DISORDER
  17. STOOL SOFTENER [Concomitant]
     Indication: PRODUCT USED FOR UNKNOWN INDICATION
  18. SINGULAIR [Concomitant]
     Indication: SINUS DISORDER
  19. TUMS [Concomitant]
     Indication: PRODUCT USED FOR UNKNOWN INDICATION
  20. EYE DROPS [Concomitant]
     Indication: DRY EYE

REACTIONS (2)
  - Papule [Not Recovered/Not Resolved]
  - Pruritus [Not Recovered/Not Resolved]
